FAERS Safety Report 4822377-5 (Version None)
Quarter: 2005Q4

REPORT INFORMATION
  Report Type: 
  Country: None (occurrence: None)
  Receive Date: 20051108
  Receipt Date: 20050812
  Transmission Date: 20060501
  Serious: Yes (Death, Hospitalization)
  Sender: FDA-Public Use
  Company Number: JP-BOEHRINGER INGELHEIM PHARMACEUTICALS, INC.-2005-BP-15011NB

PATIENT
  Sex: Male
  Weight: 42.5 kg

DRUGS (4)
  1. BI-SIFROL TABLETS [Suspect]
     Indication: PARKINSON'S DISEASE
     Route: 048
     Dates: start: 20050729, end: 20050801
  2. PERMAX [Suspect]
     Indication: PARKINSON'S DISEASE
     Route: 048
     Dates: start: 20020216, end: 20050801
  3. STOBRUN (TRIHEXPHENIDYL HYDROCHLORIDE) [Concomitant]
     Indication: PARKINSON'S DISEASE
     Route: 048
     Dates: start: 19990619, end: 20050729
  4. EPADEL S (ETHYL ICOSAPENTATE) [Concomitant]
     Indication: HYPERLIPIDAEMIA
     Route: 048
     Dates: start: 19960101, end: 20050801

REACTIONS (5)
  - ACUTE RESPIRATORY FAILURE [None]
  - CANDIDIASIS [None]
  - COMA [None]
  - KLEBSIELLA INFECTION [None]
  - PSEUDOMONAS INFECTION [None]
